FAERS Safety Report 6190737-9 (Version None)
Quarter: 2009Q2

REPORT INFORMATION
  Report Type: 
  Country: None (occurrence: None)
  Receive Date: 20090514
  Receipt Date: 20090507
  Transmission Date: 20091009
  Serious: Yes (Other)
  Sender: FDA-Public Use
  Company Number: US-ELI_LILLY_AND_COMPANY-US200905001552

PATIENT
  Sex: Female

DRUGS (4)
  1. HUMALOG [Suspect]
  2. ATENOLOL [Concomitant]
  3. NORVASC [Concomitant]
  4. IMDUR [Concomitant]

REACTIONS (6)
  - AMNESIA [None]
  - BLOOD GLUCOSE INCREASED [None]
  - MYOCARDIAL INFARCTION [None]
  - SINUS HEADACHE [None]
  - SINUSITIS [None]
  - VISUAL ACUITY REDUCED [None]
